FAERS Safety Report 9525428 (Version 1)
Quarter: 2013Q1

REPORT INFORMATION
  Report Type: Spontaneous
  Country: US (occurrence: None)
  Receive Date: 20130314
  Receipt Date: 20130314
  Transmission Date: 20140127
  Serious: No
  Sender: FDA-Public Use
  Company Number: 1301USA010280

PATIENT
  Age: 58 Year
  Sex: Male
  Weight: 90.7 kg

DRUGS (8)
  1. VICTRELIS (BOCEPREVIR) CAPSULE, 200MG [Suspect]
     Indication: HEPATITIS C
     Dosage: 800 MG, EVERY 8 HOURS, ORAL, CAPSULE
  2. RIBASPHERE [Suspect]
     Indication: HEPATITIS C
     Dosage: 6 DF, 3 TABLETS IN THE MORNING AND 3 TABLETS IN THE EVENING
  3. PEGASYS [Suspect]
     Dosage: 135 MICROGRAM/0.5 ML, EVERY WEEK, SUBCUTANEOUS
  4. AUGMENTIN (AMOXICILLIN W/POTASSIUM CLAVULANATE) [Suspect]
     Indication: HEPATITIS C
  5. LOSARTAN POTASSIUM (LOSARTAN POTASSIUM) [Concomitant]
  6. METOPROLOL TARTRATE (METOPROLOL TARTRATE) [Concomitant]
  7. HYDROCHLOROTHIAZIDE (HYDROCHLOROTHIAZIDE) [Concomitant]
  8. RANITIDINE (RANITIDINE) [Concomitant]

REACTIONS (1)
  - Rash generalised [None]
